FAERS Safety Report 9329068 (Version 1)
Quarter: 2013Q2

REPORT INFORMATION
  Report Type: Spontaneous
  Country: US (occurrence: US)
  Receive Date: 20130604
  Receipt Date: 20130604
  Transmission Date: 20140414
  Serious: No
  Sender: FDA-Public Use
  Company Number: US-SANOFI-AVENTIS-2012SA072672

PATIENT
  Age: 68 Year
  Sex: Male

DRUGS (2)
  1. LANTUS [Suspect]
     Indication: TYPE 2 DIABETES MELLITUS
     Dosage: DOSE:36 UNIT(S)
     Route: 058
  2. HUMALOG [Suspect]
     Indication: TYPE 2 DIABETES MELLITUS
     Route: 065

REACTIONS (6)
  - Increased appetite [Not Recovered/Not Resolved]
  - Tinnitus [Not Recovered/Not Resolved]
  - Blood glucose decreased [Not Recovered/Not Resolved]
  - Nervousness [Not Recovered/Not Resolved]
  - Tremor [Not Recovered/Not Resolved]
  - Hunger [Not Recovered/Not Resolved]
